FAERS Safety Report 11196738 (Version 1)
Quarter: 2015Q2

REPORT INFORMATION
  Report Type: Spontaneous
  Country: AU (occurrence: AU)
  Receive Date: 20150617
  Receipt Date: 20150617
  Transmission Date: 20150821
  Serious: Yes (Death)
  Sender: FDA-Public Use
  Company Number: AU-PFIZER INC-2015200090

PATIENT
  Sex: Male

DRUGS (1)
  1. CYKLOKAPRON [Suspect]
     Active Substance: TRANEXAMIC ACID
     Indication: GASTRIC HAEMORRHAGE
     Dosage: 1000 MG, 3X/DAY
     Route: 048

REACTIONS (1)
  - Vomiting [Fatal]
